FAERS Safety Report 8335806-X (Version None)
Quarter: 2012Q2

REPORT INFORMATION
  Report Type: 
  Country: None (occurrence: None)
  Receive Date: 20120504
  Receipt Date: 20091119
  Transmission Date: 20120825
  Serious: Yes (Other)
  Sender: FDA-Public Use
  Company Number: US-BAYER-200829538NA

PATIENT
  Age: 54 Year
  Sex: Male
  Weight: 104.31 kg

DRUGS (20)
  1. MAGNEVIST [Suspect]
     Indication: NUCLEAR MAGNETIC RESONANCE IMAGING
     Dates: start: 20010529, end: 20010529
  2. NEXIUM [Concomitant]
  3. NEPHROCAPS [Concomitant]
  4. OMNISCAN [Suspect]
     Indication: COMPUTERISED TOMOGRAM
     Route: 042
     Dates: start: 20041104, end: 20041104
  5. OMNISCAN [Suspect]
     Dates: start: 20060630, end: 20060630
  6. OMNISCAN [Suspect]
     Dates: start: 20060701, end: 20060701
  7. PRANDIN [Concomitant]
  8. OMNISCAN [Suspect]
     Dates: start: 20060913, end: 20060913
  9. ASPIRIN [Concomitant]
  10. PREDNISONE TAB [Concomitant]
  11. OMNISCAN [Suspect]
     Indication: NUCLEAR MAGNETIC RESONANCE IMAGING
     Route: 042
     Dates: start: 20050118, end: 20050118
  12. OMNISCAN [Suspect]
     Dosage: UNK UNK, ONCE
     Dates: start: 20060810, end: 20060810
  13. PLAVIX [Concomitant]
  14. SYNTHROID [Concomitant]
  15. COUMADIN [Concomitant]
  16. GLYBURIDE [Concomitant]
  17. RENAGEL [Concomitant]
  18. KEFLEX [Concomitant]
  19. HYDROCORTISONE [Concomitant]
  20. EPOGEN [Concomitant]
     Dosage: DURING DIALYSIS
     Route: 042

REACTIONS (27)
  - ERYTHEMA [None]
  - ANXIETY [None]
  - PAIN [None]
  - SKIN LESION [None]
  - OEDEMA [None]
  - SKIN FIBROSIS [None]
  - RASH [None]
  - SCAR [None]
  - JOINT RANGE OF MOTION DECREASED [None]
  - MUSCLE TIGHTNESS [None]
  - ABASIA [None]
  - SKIN HYPERTROPHY [None]
  - PRURITUS [None]
  - DRY SKIN [None]
  - INJURY [None]
  - SKIN EXFOLIATION [None]
  - GAIT DISTURBANCE [None]
  - OEDEMA PERIPHERAL [None]
  - NEPHROGENIC SYSTEMIC FIBROSIS [None]
  - SWELLING [None]
  - SKIN MASS [None]
  - SKIN INDURATION [None]
  - LICHENIFICATION [None]
  - IMMOBILE [None]
  - SKIN DISORDER [None]
  - ASTHENIA [None]
  - ANHEDONIA [None]
